FAERS Safety Report 17758075 (Version 3)
Quarter: 2024Q4

REPORT INFORMATION
  Report Type: Spontaneous
  Country: JP (occurrence: JP)
  Receive Date: 20200507
  Receipt Date: 20241122
  Transmission Date: 20250114
  Serious: Yes (Hospitalization, Other)
  Sender: ELI LILLY AND COMPANY
  Company Number: JP-ELI_LILLY_AND_COMPANY-JP202004010251

PATIENT
  Age: 77 Year
  Sex: Male
  Weight: 73.4 kg

DRUGS (9)
  1. CYRAMZA [Suspect]
     Active Substance: RAMUCIRUMAB
     Indication: Rectosigmoid cancer recurrent
     Dosage: 480 MG
     Route: 041
     Dates: start: 20200318, end: 20200318
  2. FLUOROURACIL [Concomitant]
     Active Substance: FLUOROURACIL
     Indication: Rectosigmoid cancer recurrent
     Dosage: UNK
     Dates: start: 20200318, end: 20200320
  3. LEUCOVORIN CALCIUM [Concomitant]
     Active Substance: LEUCOVORIN CALCIUM
     Indication: Rectosigmoid cancer recurrent
     Dosage: UNK
     Dates: start: 20200318, end: 20200318
  4. IRINOTECAN [Concomitant]
     Active Substance: IRINOTECAN
     Indication: Rectosigmoid cancer recurrent
     Dosage: UNK
     Dates: start: 20200318, end: 20200318
  5. ALOXI [Concomitant]
     Active Substance: PALONOSETRON HYDROCHLORIDE
     Dosage: UNK
     Dates: start: 20200318, end: 20200318
  6. DEXAMETHASONE SODIUM PHOSPHATE [Concomitant]
     Active Substance: DEXAMETHASONE SODIUM PHOSPHATE
     Dosage: UNK
     Dates: start: 20200318, end: 20200318
  7. CELECOXIB [Concomitant]
     Active Substance: CELECOXIB
     Route: 048
  8. AMLODIPINE [Concomitant]
     Active Substance: AMLODIPINE BESYLATE
     Route: 048
  9. RABEPRAZOLE SODIUM [Concomitant]
     Active Substance: RABEPRAZOLE SODIUM
     Route: 048

REACTIONS (3)
  - Renal failure [Not Recovered/Not Resolved]
  - Nephrotic syndrome [Recovered/Resolved]
  - Neutrophil count decreased [Recovered/Resolved]

NARRATIVE: CASE EVENT DATE: 20200331
